FAERS Safety Report 8221497-5 (Version None)
Quarter: 2012Q1

REPORT INFORMATION
  Report Type: 
  Country: None (occurrence: None)
  Receive Date: 20120307
  Receipt Date: 20110513
  Transmission Date: 20120608
  Serious: No
  Sender: FDA-Public Use
  Company Number: PHHY2011US41639

PATIENT
  Sex: Male

DRUGS (2)
  1. AMOXICILLIN [Concomitant]
  2. AFINITOR [Suspect]

REACTIONS (1)
  - TOOTH DISORDER [None]
